FAERS Safety Report 22661897 (Version 1)
Quarter: 2023Q2

REPORT INFORMATION
  Report Type: Other
  Country: JP (occurrence: None)
  Receive Date: 20230630
  Receipt Date: 20230630
  Transmission Date: 20230722
  Serious: Yes (Other)
  Sender: FDA-Public Use
  Company Number: JP-ROCHE-3378179

PATIENT
  Age: 66 Year
  Sex: Male

DRUGS (8)
  1. ATEZOLIZUMAB [Suspect]
     Active Substance: ATEZOLIZUMAB
     Indication: Thymic carcinoma
     Dosage: 33 CYCLES
     Route: 065
  2. PEMBROLIZUMAB [Concomitant]
     Active Substance: PEMBROLIZUMAB
     Indication: Thymic carcinoma
     Dates: start: 201704
  3. PEMBROLIZUMAB [Concomitant]
     Active Substance: PEMBROLIZUMAB
     Dosage: 19 CYCLES
     Dates: start: 201805
  4. CARBOPLATIN [Concomitant]
     Active Substance: CARBOPLATIN
     Indication: Thymic carcinoma
     Dosage: 5 MG/ML/MIN ON DAY 1
  5. CARBOPLATIN [Concomitant]
     Active Substance: CARBOPLATIN
     Dosage: FOURTH-LINE THERAPY
     Dates: start: 202206
  6. PACLITAXEL [Concomitant]
     Active Substance: PACLITAXEL
     Indication: Thymic carcinoma
     Dosage: ON DAY 1 AND 8
  7. PACLITAXEL [Concomitant]
     Active Substance: PACLITAXEL
     Dosage: 17 CYCLES
     Dates: start: 202006
  8. PACLITAXEL [Concomitant]
     Active Substance: PACLITAXEL
     Dosage: FOURTH-LINE THERAPY
     Dates: start: 202206

REACTIONS (3)
  - Metastases to liver [Recovering/Resolving]
  - Metastases to adrenals [Recovering/Resolving]
  - Disease progression [Recovering/Resolving]
